FAERS Safety Report 21171879 (Version 1)
Quarter: 2022Q3

REPORT INFORMATION
  Report Type: Spontaneous
  Country: TW (occurrence: TW)
  Receive Date: 20220804
  Receipt Date: 20220804
  Transmission Date: 20221027
  Serious: Yes (Death, Other)
  Sender: FDA-Public Use
  Company Number: TW-BAYER-2022A108484

PATIENT
  Age: 64 Year
  Sex: Male

DRUGS (4)
  1. STIVARGA [Suspect]
     Active Substance: REGORAFENIB
     Indication: Rectal adenocarcinoma
     Dosage: UNK
     Dates: start: 20151216, end: 20160614
  2. STIVARGA [Suspect]
     Active Substance: REGORAFENIB
     Indication: Metastases to liver
  3. STIVARGA [Suspect]
     Active Substance: REGORAFENIB
     Indication: K-ras gene mutation
  4. STIVARGA [Suspect]
     Active Substance: REGORAFENIB
     Indication: Metastases to lung

REACTIONS (3)
  - Death [Fatal]
  - Rectal adenocarcinoma [None]
  - Metastases to liver [None]

NARRATIVE: CASE EVENT DATE: 20170322
